FAERS Safety Report 5200508-5 (Version None)
Quarter: 2007Q1

REPORT INFORMATION
  Report Type: 
  Country: None (occurrence: None)
  Receive Date: 20070105
  Receipt Date: 20061229
  Transmission Date: 20070707
  Serious: Yes (Other)
  Sender: FDA-Public Use
  Company Number: PT-ABBOTT-07P-130-0354677-00

PATIENT
  Sex: Male
  Weight: 70 kg

DRUGS (10)
  1. KLACID COATED TABLETS [Suspect]
     Indication: HELICOBACTER INFECTION
     Route: 048
     Dates: start: 20061031, end: 20061107
  2. AMOXICILLIN TRIHYDRATE [Suspect]
     Indication: HELICOBACTER INFECTION
     Route: 048
     Dates: start: 20061031, end: 20061107
  3. DOMPERIDONE [Concomitant]
     Indication: HELICOBACTER INFECTION
     Route: 048
     Dates: start: 20061031, end: 20061107
  4. OMEPRAZOLE [Concomitant]
     Indication: HELICOBACTER INFECTION
     Route: 048
     Dates: start: 20061031, end: 20061107
  5. ASCORBIC ACID [Concomitant]
     Indication: CARDIOVASCULAR DISORDER
     Route: 048
     Dates: end: 20061107
  6. CHLORDIAZEPOXIDE [Concomitant]
     Indication: GASTRIC DISORDER
     Route: 048
     Dates: start: 20050101, end: 20061107
  7. CLIDINIUM BROMIDE [Concomitant]
     Indication: CARDIOVASCULAR DISORDER
     Route: 048
     Dates: start: 20050101, end: 20061107
  8. RUSCUS ACULEATUS [Concomitant]
     Indication: CARDIOVASCULAR DISORDER
     Route: 048
     Dates: end: 20061107
  9. HESPERIDIN METHYL CHALCONE [Concomitant]
     Indication: CARDIOVASCULAR DISORDER
     Route: 048
     Dates: end: 20061107
  10. TRIMETAZIDINE HYDROCHLORIDE [Concomitant]
     Indication: CARDIOVASCULAR DISORDER
     Route: 048
     Dates: start: 20050101, end: 20061107

REACTIONS (6)
  - DYSPHONIA [None]
  - GLOSSODYNIA [None]
  - MUCOSAL INFLAMMATION [None]
  - OEDEMA MOUTH [None]
  - ORAL MUCOSAL EXFOLIATION [None]
  - TONGUE OEDEMA [None]
